FAERS Safety Report 5775828-6 (Version None)
Quarter: 2008Q2

REPORT INFORMATION
  Report Type: 
  Country: None (occurrence: None)
  Receive Date: 20080617
  Receipt Date: 20080605
  Transmission Date: 20081010
  Serious: Yes (Other)
  Sender: FDA-Public Use
  Company Number: US-PFIZER INC-2008047824

PATIENT
  Age: 48 Year
  Sex: Female

DRUGS (1)
  1. FLAGYL [Suspect]

REACTIONS (1)
  - ABORTION SPONTANEOUS [None]
